FAERS Safety Report 19487911 (Version 1)
Quarter: 2021Q3

REPORT INFORMATION
  Report Type: Spontaneous
  Country: NL (occurrence: NL)
  Receive Date: 20210702
  Receipt Date: 20210702
  Transmission Date: 20211014
  Serious: Yes (Hospitalization, Disabling, Other)
  Sender: FDA-Public Use
  Company Number: NL-BRISTOL-MYERS SQUIBB COMPANY-BMS-2021-060780

PATIENT
  Sex: Male
  Weight: 76 kg

DRUGS (2)
  1. ASCAL [CARBASALATE CALCIUM] [Concomitant]
     Active Substance: CARBASPIRIN CALCIUM
     Indication: PRODUCT USED FOR UNKNOWN INDICATION
     Route: 065
  2. HYDROXYUREA. [Suspect]
     Active Substance: HYDROXYUREA
     Indication: POLYCYTHAEMIA VERA
     Dosage: 1 DOSAGE FORM, QD
     Route: 065
     Dates: start: 20081210

REACTIONS (7)
  - Abdominal pain [Unknown]
  - Abdominal distension [Unknown]
  - Depressed mood [Unknown]
  - Fatigue [Unknown]
  - Near death experience [Unknown]
  - Stomatitis [Unknown]
  - Diarrhoea [Unknown]
